FAERS Safety Report 9259957 (Version 3)
Quarter: 2014Q2

REPORT INFORMATION
  Report Type: Spontaneous
  Country: US (occurrence: US)
  Receive Date: 20130429
  Receipt Date: 20140409
  Transmission Date: 20141212
  Serious: Yes (Hospitalization, Other)
  Sender: FDA-Public Use
  Company Number: US-BAYER-2013-050673

PATIENT
  Age: 26 Year
  Sex: Female
  Weight: 63.49 kg

DRUGS (1)
  1. MIRENA [Suspect]
     Indication: CONTRACEPTION
     Dosage: 20 MCG/24HR, CONT
     Route: 015
     Dates: start: 20101028, end: 20120427

REACTIONS (11)
  - Uterine perforation [None]
  - Hyperpyrexia [None]
  - Abdominal pain lower [None]
  - Injury [None]
  - Pain [None]
  - Emotional distress [None]
  - Psychological trauma [None]
  - Depression [None]
  - Fear [None]
  - Gait disturbance [None]
  - Device issue [None]
